FAERS Safety Report 11055230 (Version 1)
Quarter: 2015Q2

REPORT INFORMATION
  Report Type: Spontaneous
  Country: US (occurrence: None)
  Receive Date: 20150421
  Receipt Date: 20150421
  Transmission Date: 20150821
  Serious: Yes (Hospitalization)
  Sender: FDA-Public Use
  Company Number: None

PATIENT
  Age: 54 Year
  Sex: Male
  Weight: 141 kg

DRUGS (3)
  1. METHOTREXATE [Suspect]
     Active Substance: METHOTREXATE
     Dates: end: 20150328
  2. LEUCOVORIN CALCIUM. [Suspect]
     Active Substance: LEUCOVORIN CALCIUM
     Dates: end: 20150328
  3. RITUXIMAB [Suspect]
     Active Substance: RITUXIMAB
     Dates: end: 20150330

REACTIONS (12)
  - Pyrexia [None]
  - Tachycardia [None]
  - Encephalopathy [None]
  - Culture urine positive [None]
  - Cerebral haemorrhage [None]
  - Status epilepticus [None]
  - Toxicity to various agents [None]
  - Tremor [None]
  - Unresponsive to stimuli [None]
  - Blood culture positive [None]
  - Candida test positive [None]
  - Brain oedema [None]

NARRATIVE: CASE EVENT DATE: 20150328
